FAERS Safety Report 24060667 (Version 5)
Quarter: 2024Q3

REPORT INFORMATION
  Report Type: Spontaneous
  Country: US (occurrence: US)
  Receive Date: 20240708
  Receipt Date: 20240731
  Transmission Date: 20241016
  Serious: Yes (Hospitalization)
  Sender: JOHNSON AND JOHNSON
  Company Number: US-JNJFOC-20240711082

PATIENT
  Age: 27 Year
  Sex: Female
  Weight: 72.1 kg

DRUGS (25)
  1. VELETRI [Suspect]
     Active Substance: EPOPROSTENOL
     Indication: Product used for unknown indication
     Route: 042
  2. OPSUMIT [Suspect]
     Active Substance: MACITENTAN
     Indication: Product used for unknown indication
     Route: 048
  3. REMODULIN [Suspect]
     Active Substance: TREPROSTINIL
     Indication: Pulmonary arterial hypertension
     Route: 058
     Dates: start: 20230517, end: 2024
  4. AMBRISENTAN [Concomitant]
     Active Substance: AMBRISENTAN
  5. SILDENAFIL [Concomitant]
     Active Substance: SILDENAFIL
  6. SODIUM CHLORIDE [Concomitant]
     Active Substance: SODIUM CHLORIDE
  7. AMITRIPTYLINE HYDROCHLORIDE [Concomitant]
     Active Substance: AMITRIPTYLINE HYDROCHLORIDE
  8. CLONIDINE [Concomitant]
     Active Substance: CLONIDINE
  9. GABAPENTIN [Concomitant]
     Active Substance: GABAPENTIN
  10. KETAMINE [Concomitant]
     Active Substance: KETAMINE
  11. KETOPROFEN [Concomitant]
     Active Substance: KETOPROFEN
  12. LECITHIN [Concomitant]
     Active Substance: LECITHIN
  13. LIDOCAINE [Concomitant]
     Active Substance: LIDOCAINE
  14. POLOXAMER [Concomitant]
     Active Substance: POLOXAMER
  15. FEXOFENADINE HYDROCHLORIDE [Concomitant]
     Active Substance: FEXOFENADINE HYDROCHLORIDE
  16. PSEUDOEPHEDRINE HYDROCHLORIDE [Concomitant]
     Active Substance: PSEUDOEPHEDRINE HYDROCHLORIDE
  17. ACETAMINOPHEN [Concomitant]
     Active Substance: ACETAMINOPHEN
  18. FLUTICASONE [Concomitant]
     Active Substance: FLUTICASONE
  19. LORATADINE [Concomitant]
     Active Substance: LORATADINE
  20. ZYRTEC [Concomitant]
     Active Substance: CETIRIZINE HYDROCHLORIDE
  21. SPIRONOLACTONE [Concomitant]
     Active Substance: SPIRONOLACTONE
  22. FERRIC POLYSACCHARIDE COMPLEX [Concomitant]
     Active Substance: FERRIC POLYSACCHARIDE COMPLEX
  23. FERROUS SULFATE [Concomitant]
     Active Substance: FERROUS SULFATE
  24. ONDANSETRON [Concomitant]
     Active Substance: ONDANSETRON
  25. OXYGEN [Concomitant]
     Active Substance: OXYGEN

REACTIONS (4)
  - Pulmonary arterial hypertension [Unknown]
  - Pruritus [Unknown]
  - Paraesthesia [Unknown]
  - Urticaria [Unknown]

NARRATIVE: CASE EVENT DATE: 20240621
